FAERS Safety Report 4886363-1 (Version None)
Quarter: 2006Q1

REPORT INFORMATION
  Report Type: 
  Country: None (occurrence: None)
  Receive Date: 20060120
  Receipt Date: 20051005
  Transmission Date: 20060701
  Serious: Yes (Death, Hospitalization)
  Sender: FDA-Public Use
  Company Number: US-MERCK-0510USA04088

PATIENT
  Age: 69 Year
  Sex: Female
  Weight: 173 kg

DRUGS (7)
  1. VIOXX [Suspect]
     Indication: ARTHRITIS
     Route: 048
     Dates: start: 20030801, end: 20031128
  2. ASPIRIN [Concomitant]
     Route: 065
  3. CAPTOPRIL MSD [Concomitant]
     Route: 065
  4. LASIX [Concomitant]
     Route: 065
  5. GLIPIZIDE [Concomitant]
     Route: 065
  6. GLUCOPHAGE [Concomitant]
     Route: 065
  7. DETROL LA [Concomitant]
     Route: 065

REACTIONS (5)
  - ATRIAL FIBRILLATION [None]
  - CARDIAC DISORDER [None]
  - CARDIOVASCULAR DISORDER [None]
  - DIABETES MELLITUS NON-INSULIN-DEPENDENT [None]
  - ISCHAEMIC STROKE [None]
